FAERS Safety Report 6251253-9 (Version None)
Quarter: 2009Q2

REPORT INFORMATION
  Report Type: 
  Country: None (occurrence: None)
  Receive Date: 20090626
  Receipt Date: 20090617
  Transmission Date: 20091009
  Serious: Yes (Hospitalization)
  Sender: FDA-Public Use
  Company Number: GXKR2009TR07031

PATIENT
  Age: 25 Year
  Sex: Male

DRUGS (2)
  1. METRONIDAZOLE [Suspect]
     Indication: GIARDIASIS
  2. ORNIDAZOLE (ORNIDAZOLE) [Suspect]
     Indication: GIARDIASIS

REACTIONS (7)
  - CYANOSIS [None]
  - DIFFUSE ALVEOLAR DAMAGE [None]
  - DYSPNOEA [None]
  - HAEMATOCRIT DECREASED [None]
  - HAEMOGLOBIN DECREASED [None]
  - HAEMOPTYSIS [None]
  - HEART RATE INCREASED [None]
